FAERS Safety Report 9366422 (Version 1)
Quarter: 2013Q2

REPORT INFORMATION
  Report Type: Spontaneous
  Country: FR (occurrence: FR)
  Receive Date: 20130625
  Receipt Date: 20130625
  Transmission Date: 20140414
  Serious: Yes (Hospitalization)
  Sender: FDA-Public Use
  Company Number: FR-TEVA-415068ISR

PATIENT
  Age: 91 Year
  Sex: Female

DRUGS (1)
  1. FUROSEMIDE TEVA 40MG [Suspect]

REACTIONS (1)
  - Fall [Unknown]
